FAERS Safety Report 5643045-6 (Version None)
Quarter: 2008Q1

REPORT INFORMATION
  Report Type: 
  Country: None (occurrence: None)
  Receive Date: 20080228
  Receipt Date: 20080221
  Transmission Date: 20080703
  Serious: Yes (Other)
  Sender: FDA-Public Use
  Company Number: PHHY2008JP02084

PATIENT
  Age: 59 Year
  Sex: Female

DRUGS (3)
  1. ZOMETA [Suspect]
     Indication: METASTASES TO BONE
     Dosage: 4 MG, QMO
     Route: 042
     Dates: start: 20061023, end: 20080215
  2. THYRADIN [Concomitant]
     Dosage: 50 UG
     Route: 048
  3. IRESSA [Concomitant]
     Dosage: 125 MG/DAY
     Route: 048

REACTIONS (2)
  - OSTEOMYELITIS [None]
  - TOOTH DISORDER [None]
